FAERS Safety Report 6601139-2 (Version None)
Quarter: 2010Q1

REPORT INFORMATION
  Report Type: 
  Country: None (occurrence: None)
  Receive Date: 20100217
  Receipt Date: 20100127
  Transmission Date: 20100710
  Serious: Yes (Hospitalization)
  Sender: FDA-Public Use
  Company Number: 1000011576

PATIENT
  Age: 59 Year
  Sex: Male
  Weight: 59 kg

DRUGS (9)
  1. NEBIVOLOL HCL [Suspect]
     Indication: HYPERTENSION
     Dosage: 5 MG (5 MG, 1 IN 1 D), ORAL
     Route: 048
  2. TRUVADA [Suspect]
     Dosage: 200 MG/245 MG (1 IN 1 D), ORAL
     Route: 048
     Dates: start: 20090530
  3. REYATAZ [Suspect]
     Dosage: 300  MG (300 MG, 1 IN 1 D), ORAL
     Route: 048
     Dates: start: 20090530
  4. NORVIR [Suspect]
     Dosage: 100 MG (100 MG IN 1 D), ORAL
     Route: 048
     Dates: start: 20090530
  5. BACTRIM [Suspect]
     Dosage: 400 MG (400 MG, 1 IN 1 D), ORAL
     Route: 048
  6. RAMIPRIL [Suspect]
     Dosage: 5 MG (5 MG , 1 IN 1 D), ORAL
     Route: 048
  7. IMODIUM [Suspect]
     Dosage: 0.5714 MG (4 MG, 1 IN 1 WK), ORAL
     Route: 048
  8. AZADOSE [Suspect]
     Dosage: 0.1714 GM (1.2 GM,1 IN 1 WK), ORAL
     Route: 048
  9. DI FFU K [Suspect]
     Dosage: 1200  MG (1200 MG, 1 IN 1 D), ORAL
     Route: 048

REACTIONS (3)
  - DYSPNOEA [None]
  - HYPERCAPNIA [None]
  - PERIPHERAL MOTOR NEUROPATHY [None]
